FAERS Safety Report 6505006-4 (Version None)
Quarter: 2009Q4

REPORT INFORMATION
  Report Type: 
  Country: None (occurrence: None)
  Receive Date: 20091218
  Receipt Date: 20091215
  Transmission Date: 20100525
  Serious: Yes (Other)
  Sender: FDA-Public Use
  Company Number: GB-JNJFOC-20080802593

PATIENT
  Age: 4 Year
  Sex: Male

DRUGS (2)
  1. PARACETAMOL [Suspect]
     Route: 054
  2. PARACETAMOL [Suspect]
     Indication: DRUG USE FOR UNKNOWN INDICATION
     Dosage: 2.25 GRAMS (ALLEGED MAXIMUM DOSE) TREATMENT DURATION 4 DAYS
     Route: 054

REACTIONS (2)
  - LIVER INJURY [None]
  - OVERDOSE [None]
